FAERS Safety Report 25936654 (Version 1)
Quarter: 2025Q4

REPORT INFORMATION
  Report Type: Spontaneous
  Country: CN (occurrence: CN)
  Receive Date: 20251017
  Receipt Date: 20251017
  Transmission Date: 20260117
  Serious: Yes (Other)
  Sender: ALEXION PHARMACEUTICALS
  Company Number: CN-ASTRAZENECA-202510GLO013560CN

PATIENT
  Age: 54 Year
  Sex: Male

DRUGS (3)
  1. OLAPARIB [Suspect]
     Active Substance: OLAPARIB
     Indication: NUT midline carcinoma
     Dosage: 150 MILLIGRAM, BID
     Route: 065
  2. CATEQUENTINIB [Concomitant]
     Active Substance: CATEQUENTINIB
     Indication: NUT midline carcinoma
     Dosage: 8 MILLIGRAM, QD
  3. AFATINIB [Concomitant]
     Active Substance: AFATINIB
     Indication: NUT midline carcinoma

REACTIONS (2)
  - Malignant neoplasm progression [Unknown]
  - Off label use [Unknown]
